FAERS Safety Report 9398296 (Version 1)
Quarter: 2013Q3

REPORT INFORMATION
  Report Type: Spontaneous
  Country: US (occurrence: US)
  Receive Date: 20130712
  Receipt Date: 20130712
  Transmission Date: 20140515
  Serious: No
  Sender: FDA-Public Use
  Company Number: US-GLAXOSMITHKLINE-A1002499A

PATIENT
  Sex: Female

DRUGS (6)
  1. FLOVENT [Suspect]
     Indication: PRODUCT USED FOR UNKNOWN INDICATION
     Dosage: 2PUFF TWICE PER DAY
     Route: 048
     Dates: start: 20120927
  2. ZOFRAN [Concomitant]
  3. FLEXERIL [Concomitant]
  4. ESTRACE [Concomitant]
     Route: 067
  5. LIDODERM PATCHES [Concomitant]
  6. NORTRIPTYLINE [Concomitant]

REACTIONS (3)
  - Oesophageal pain [Unknown]
  - Abdominal discomfort [Unknown]
  - Incorrect route of drug administration [Unknown]
